FAERS Safety Report 9729234 (Version 1)
Quarter: 2013Q4

REPORT INFORMATION
  Report Type: Spontaneous
  Country: GB (occurrence: GB)
  Receive Date: 20131204
  Receipt Date: 20131204
  Transmission Date: 20140711
  Serious: Yes (Other)
  Sender: FDA-Public Use
  Company Number: GB-TEVA-447174ISR

PATIENT
  Age: 27 Year
  Sex: Female

DRUGS (3)
  1. MODAFINIL [Suspect]
     Dosage: THE EXPOSURE PERIOUD IS THROUGHOUT THE PREGNANCY
  2. CILEST [Concomitant]
     Indication: ORAL CONTRACEPTION
     Route: 048
  3. DEXAMPHETAMINE [Concomitant]

REACTIONS (2)
  - Ectopic pregnancy [Unknown]
  - Pregnancy on oral contraceptive [Unknown]
